FAERS Safety Report 10873727 (Version 1)
Quarter: 2015Q1

REPORT INFORMATION
  Report Type: Spontaneous
  Country: GB (occurrence: None)
  Receive Date: 20150224
  Receipt Date: 20150224
  Transmission Date: 20150721
  Serious: Yes (Hospitalization, Other)
  Sender: FDA-Public Use
  Company Number: GB-ZYDUS-006743

PATIENT
  Age: 48 Year
  Sex: Female

DRUGS (1)
  1. ANASTROZOLE (ANASTROZOLE) [Suspect]
     Active Substance: ANASTROZOLE
     Dosage: 1.00 TIIMES / PER-1.0DAYS

REACTIONS (2)
  - Drug-induced liver injury [None]
  - Hepatic steatosis [None]

NARRATIVE: CASE EVENT DATE: 201307
